FAERS Safety Report 18996903 (Version 1)
Quarter: 2021Q1

REPORT INFORMATION
  Report Type: Spontaneous
  Country: US (occurrence: US)
  Receive Date: 20210311
  Receipt Date: 20210311
  Transmission Date: 20210420
  Serious: No
  Sender: FDA-Public Use
  Company Number: None

PATIENT
  Age: 50 Year
  Sex: Male
  Weight: 101.25 kg

DRUGS (24)
  1. REMERON [Concomitant]
     Active Substance: MIRTAZAPINE
  2. XANAX IMMEDIATE RELEASE [Concomitant]
  3. LAMOTRAGINE [Concomitant]
     Active Substance: LAMOTRIGINE
  4. TRINTELLIX [Concomitant]
     Active Substance: VORTIOXETINE HYDROBROMIDE
  5. VYVANSE [Concomitant]
     Active Substance: LISDEXAMFETAMINE DIMESYLATE
  6. LIOTHYRONINE [Concomitant]
     Active Substance: LIOTHYRONINE
  7. ANASTRAZOLE [Concomitant]
     Active Substance: ANASTROZOLE
  8. FISH OIL [Concomitant]
     Active Substance: FISH OIL
  9. ASENAPINE MALEATE 10 MG SL TABLETS [Suspect]
     Active Substance: ASENAPINE MALEATE
     Indication: DEPRESSION
     Dosage: ?          QUANTITY:2 TABLET(S);?
     Route: 060
     Dates: start: 20210223
  10. ASENAPINE MALEATE 10 MG SL TABLETS [Suspect]
     Active Substance: ASENAPINE MALEATE
     Indication: OBSESSIVE THOUGHTS
     Dosage: ?          QUANTITY:2 TABLET(S);?
     Route: 060
     Dates: start: 20210223
  11. SOLIFICEN [Concomitant]
  12. CABERALINE [Concomitant]
  13. WELLBUTRIN XL [Concomitant]
     Active Substance: BUPROPION HYDROCHLORIDE
  14. OZEMPIC [Concomitant]
     Active Substance: SEMAGLUTIDE
  15. LEVOTHYROXINE. [Concomitant]
     Active Substance: LEVOTHYROXINE
  16. ASENAPINE MALEATE SL [Concomitant]
  17. ATORVASTIN [Concomitant]
     Active Substance: ATORVASTATIN
  18. RAINBOW LIGHT ACTIVE ADULT 50+ [Concomitant]
  19. METFORMIN [Concomitant]
     Active Substance: METFORMIN HYDROCHLORIDE
  20. PANTOPRAZOLE [Concomitant]
     Active Substance: PANTOPRAZOLE
  21. BABY ASPIRIN [Concomitant]
     Active Substance: ASPIRIN
  22. XANAX XR [Concomitant]
     Active Substance: ALPRAZOLAM
  23. LISINOPRIL. [Concomitant]
     Active Substance: LISINOPRIL
  24. CPAP MACHINE [Concomitant]

REACTIONS (3)
  - Depression [None]
  - Self-injurious ideation [None]
  - Suicidal ideation [None]

NARRATIVE: CASE EVENT DATE: 20210223
